FAERS Safety Report 8872992 (Version 1)
Quarter: 2012Q4

REPORT INFORMATION
  Report Type: 
  Country: JP (occurrence: JP)
  Receive Date: 20121029
  Receipt Date: 20121029
  Transmission Date: 20130627
  Serious: Yes (Hospitalization)
  Sender: FDA-Public Use
  Company Number: JP-009507513-1210JPN008099

PATIENT
  Age: 73 Year
  Sex: Female
  Weight: 59 kg

DRUGS (13)
  1. PEGINTRON [Suspect]
     Indication: HEPATITIS C
     Dosage: 1.3 Microgram per kilogram, qw
     Route: 058
     Dates: start: 20120622, end: 20120622
  2. PEGINTRON [Suspect]
     Dosage: 60 Microgram per kilogram, qw
     Route: 058
     Dates: start: 20120629, end: 20120629
  3. REBETOL [Suspect]
     Indication: HEPATITIS C
     Dosage: 200 mg, qd
     Route: 048
     Dates: start: 20120622, end: 20120703
  4. TELAVIC [Suspect]
     Indication: HEPATITIS C
     Dosage: 2250 milligrams, qd
     Route: 048
     Dates: start: 20120622, end: 20120629
  5. TELAVIC [Suspect]
     Dosage: 1500 milligrams, qd
     Route: 048
     Dates: start: 20120629, end: 20120703
  6. BAYASPIRIN [Concomitant]
     Dosage: 100 mg, qd
     Route: 048
     Dates: end: 20120713
  7. ZETIA [Concomitant]
     Indication: HYPERLIPIDAEMIA
     Dosage: 10 mg, qd
     Route: 048
     Dates: end: 20120713
  8. NIVADIL [Concomitant]
     Indication: HYPERTENSION
     Dosage: 8 mg, qd
     Route: 048
     Dates: end: 20120706
  9. MEVAN [Concomitant]
     Indication: HYPERLIPIDAEMIA
     Dosage: 5 mg, qd
     Route: 048
  10. TALION (BEPOTASTINE BESYLATE) [Concomitant]
     Indication: PROPHYLAXIS
     Dosage: 20 mg, qd
     Route: 048
     Dates: end: 20120814
  11. BLOPRESS [Concomitant]
     Indication: HYPERTENSION
     Dosage: 4 mg, qd
     Route: 048
     Dates: start: 20120628, end: 20120731
  12. BLOPRESS [Concomitant]
     Dosage: 8 mg, qd
     Route: 048
     Dates: start: 20120801
  13. SULPRIDE [Concomitant]
     Indication: DEPRESSION
     Dosage: 100 mg, qd
     Route: 048
     Dates: end: 20120705

REACTIONS (1)
  - Depression [Recovered/Resolved]
